FAERS Safety Report 6824833-7 (Version None)
Quarter: 2010Q3

REPORT INFORMATION
  Report Type: 
  Country: None (occurrence: None)
  Receive Date: 20100708
  Receipt Date: 20061122
  Transmission Date: 20110219
  Serious: No
  Sender: FDA-Public Use
  Company Number: US-PFIZER INC-2006147699

PATIENT
  Sex: Female
  Weight: 52.62 kg

DRUGS (4)
  1. CHANTIX [Suspect]
     Indication: SMOKING CESSATION THERAPY
     Dates: start: 20061116
  2. LEVAQUIN [Concomitant]
  3. PREDNISONE [Concomitant]
  4. COMBIVENT [Concomitant]
     Route: 055

REACTIONS (1)
  - VISION BLURRED [None]
